FAERS Safety Report 18723275 (Version 1)
Quarter: 2021Q1

REPORT INFORMATION
  Report Type: Spontaneous
  Country: US (occurrence: US)
  Receive Date: 20210111
  Receipt Date: 20210111
  Transmission Date: 20210419
  Serious: Yes (Other)
  Sender: FDA-Public Use
  Company Number: US-GLAXOSMITHKLINE-US2020GSK256247

PATIENT
  Sex: Male

DRUGS (4)
  1. ZANTAC [Suspect]
     Active Substance: RANITIDINE HYDROCHLORIDE
     Indication: HIATUS HERNIA
     Dosage: 75 MG, QD
     Route: 065
     Dates: start: 199602, end: 201003
  2. ZANTAC [Suspect]
     Active Substance: RANITIDINE HYDROCHLORIDE
     Indication: HIATUS HERNIA
     Dosage: 75 MG, QD
     Route: 065
     Dates: start: 199602, end: 201003
  3. RANITIDINE HYDROCHLORIDE. [Suspect]
     Active Substance: RANITIDINE HYDROCHLORIDE
     Indication: HIATUS HERNIA
     Dosage: 75 MG, QD
     Route: 065
     Dates: start: 199701, end: 201003
  4. RANITIDINE HYDROCHLORIDE. [Suspect]
     Active Substance: RANITIDINE HYDROCHLORIDE
     Indication: HIATUS HERNIA
     Dosage: 75 MG, QD
     Route: 065
     Dates: start: 199701, end: 201003

REACTIONS (1)
  - Colorectal cancer [Unknown]
